FAERS Safety Report 19435890 (Version 1)
Quarter: 2021Q2

REPORT INFORMATION
  Report Type: Spontaneous
  Country: US (occurrence: US)
  Receive Date: 20210618
  Receipt Date: 20210618
  Transmission Date: 20210717
  Serious: No
  Sender: FDA-Public Use
  Company Number: US-009507513-2106USA003739

PATIENT

DRUGS (4)
  1. INTRON A [Suspect]
     Active Substance: INTERFERON ALFA-2B
     Indication: MYELOID LEUKAEMIA
     Dosage: 3 MILLION UNITS, 3 TIME A WEEK
     Route: 030
     Dates: start: 20210503
  2. PROCHLORPERAZINE. [Concomitant]
     Active Substance: PROCHLORPERAZINE
     Dosage: UNK
  3. ONDASETRON [ONDANSETRON] [Concomitant]
     Active Substance: ONDANSETRON
     Dosage: UNK
  4. NORLYDA [Concomitant]
     Active Substance: NORETHINDRONE
     Dosage: UNK

REACTIONS (3)
  - Headache [Unknown]
  - Diarrhoea [Unknown]
  - Vomiting [Unknown]

NARRATIVE: CASE EVENT DATE: 2021
